FAERS Safety Report 4868848-7 (Version None)
Quarter: 2005Q4

REPORT INFORMATION
  Report Type: 
  Country: None (occurrence: None)
  Receive Date: 20051229
  Receipt Date: 20050125
  Transmission Date: 20060501
  Serious: Yes (Disabling, Other)
  Sender: FDA-Public Use
  Company Number: US-MERCK-0501USA04115

PATIENT
  Age: 60 Year
  Sex: Female
  Weight: 127 kg

DRUGS (18)
  1. VIOXX [Suspect]
     Indication: ARTHRITIS
     Route: 048
     Dates: start: 20010806, end: 20040929
  2. METOPROLOL [Concomitant]
     Route: 065
  3. HYDROCHLOROTHIAZIDE [Concomitant]
     Route: 065
  4. LISINOPRIL [Concomitant]
     Route: 065
  5. LOVASTATIN [Concomitant]
     Route: 065
  6. DURAGESIC-100 [Concomitant]
     Route: 065
  7. PRAVACHOL [Concomitant]
     Route: 065
  8. CARDURA [Concomitant]
     Route: 065
  9. MONOPRIL [Concomitant]
     Route: 065
  10. TAMOXIFEN CITRATE [Concomitant]
     Route: 065
  11. GLUCOPHAGE [Concomitant]
     Route: 065
  12. NIFEDIPINE [Concomitant]
     Route: 065
  13. GLUCOTROL [Concomitant]
     Route: 065
  14. LASIX [Concomitant]
     Route: 065
  15. AVANDIA [Concomitant]
     Route: 065
  16. VERAPAMIL [Concomitant]
     Route: 065
  17. SYNTHROID [Concomitant]
     Route: 065
  18. ADVICOR [Concomitant]
     Route: 065

REACTIONS (11)
  - ARTERIOSCLEROSIS [None]
  - ASTHMA [None]
  - BRAIN DAMAGE [None]
  - CARDIAC FAILURE CONGESTIVE [None]
  - CARDIOMEGALY [None]
  - CEREBROVASCULAR ACCIDENT [None]
  - DEPRESSION [None]
  - FACIAL PALSY [None]
  - FALL [None]
  - FIBROMYALGIA [None]
  - MALIGNANT HYPERTENSION [None]
